FAERS Safety Report 25072523 (Version 2)
Quarter: 2025Q1

REPORT INFORMATION
  Report Type: Spontaneous
  Country: US (occurrence: US)
  Receive Date: 20250313
  Receipt Date: 20250317
  Transmission Date: 20250408
  Serious: No
  Sender: SANOFI AVENTIS
  Company Number: US-SA-2025SA072629

PATIENT
  Age: 72 Year
  Sex: Female
  Weight: 68.18 kg

DRUGS (22)
  1. DUPIXENT [Suspect]
     Active Substance: DUPILUMAB
     Indication: Dermatitis atopic
     Dosage: 300 MG, QOW
     Route: 058
     Dates: start: 20200311
  2. VITAMINS [Concomitant]
     Active Substance: VITAMINS
     Dosage: DAILY
  3. BENEFIBER [Concomitant]
     Active Substance: STARCH, WHEAT
  4. CALCIUM\CHOLECALCIFEROL [Concomitant]
     Active Substance: CALCIUM\CHOLECALCIFEROL
  5. Magnessium carbonate [Concomitant]
  6. OMEGA-3 ACIDS [Concomitant]
     Active Substance: OMEGA-3 FATTY ACIDS
  7. DICLOFENAC SODIUM [Concomitant]
     Active Substance: DICLOFENAC SODIUM
  8. ALBUTEROL SULFATE [Concomitant]
     Active Substance: ALBUTEROL SULFATE
  9. PREDNISONE [Concomitant]
     Active Substance: PREDNISONE
  10. FLUTICASONE PROPIONATE [Concomitant]
     Active Substance: FLUTICASONE PROPIONATE
  11. FAMOTIDINE [Concomitant]
     Active Substance: FAMOTIDINE
  12. ZINC [Concomitant]
     Active Substance: ZINC
  13. MAGNESIUM [Concomitant]
     Active Substance: MAGNESIUM
  14. CALCIUM [Concomitant]
     Active Substance: CALCIUM
  15. GABAPENTIN [Concomitant]
     Active Substance: GABAPENTIN
  16. LANSOPRAZOLE [Concomitant]
     Active Substance: LANSOPRAZOLE
  17. AZELASTINE HYDROCHLORIDE [Concomitant]
     Active Substance: AZELASTINE HYDROCHLORIDE
  18. MOMETASONE FUROATE [Concomitant]
     Active Substance: MOMETASONE FUROATE
  19. SIMVASTATIN [Concomitant]
     Active Substance: SIMVASTATIN
  20. ESTRADIOL [Concomitant]
     Active Substance: ESTRADIOL
     Route: 062
  21. TACROLIMUS [Concomitant]
     Active Substance: TACROLIMUS
  22. BENEFIBER [Concomitant]
     Active Substance: STARCH, WHEAT

REACTIONS (6)
  - Nausea [Unknown]
  - Vomiting [Recovered/Resolved]
  - Skin fissures [Not Recovered/Not Resolved]
  - Diarrhoea [Recovered/Resolved]
  - Viral infection [Unknown]
  - Injection site pain [Unknown]

NARRATIVE: CASE EVENT DATE: 20250101
